FAERS Safety Report 15440858 (Version 1)
Quarter: 2018Q3

REPORT INFORMATION
  Report Type: Spontaneous
  Country: US (occurrence: US)
  Receive Date: 20180925
  Receipt Date: 20180925
  Transmission Date: 20181010
  Serious: Yes (Other)
  Sender: FDA-Public Use
  Company Number: None

PATIENT
  Age: 59 Year
  Sex: Male
  Weight: 115.2 kg

DRUGS (1)
  1. ENBREL [Suspect]
     Active Substance: ETANERCEPT
     Indication: PSORIASIS
     Dosage: ?          QUANTITY:4 INJECTION(S);OTHER FREQUENCY:TWICE WEEKLY;?
     Route: 030
     Dates: start: 20180620, end: 20180902

REACTIONS (5)
  - Gait inability [None]
  - Psoriasis [None]
  - Back pain [None]
  - Renal disorder [None]
  - Musculoskeletal disorder [None]

NARRATIVE: CASE EVENT DATE: 20180902
